FAERS Safety Report 5693094-7 (Version None)
Quarter: 2008Q2

REPORT INFORMATION
  Report Type: 
  Country: None (occurrence: None)
  Receive Date: 20080402
  Receipt Date: 20080402
  Transmission Date: 20081010
  Serious: Yes (Other)
  Sender: FDA-Public Use
  Company Number: None

PATIENT
  Sex: Female
  Weight: 73.9363 kg

DRUGS (1)
  1. BICILLIN L-A [Suspect]
     Indication: PHARYNGITIS STREPTOCOCCAL
     Dosage: 1,200,000 UNITS PER 2 ML IM
     Route: 030
     Dates: start: 20080225

REACTIONS (3)
  - INJECTION SITE ERYTHEMA [None]
  - INJECTION SITE INDURATION [None]
  - SUBCUTANEOUS ABSCESS [None]
